FAERS Safety Report 8421304-1 (Version None)
Quarter: 2012Q2

REPORT INFORMATION
  Report Type: 
  Country: None (occurrence: None)
  Receive Date: 20120323
  Receipt Date: 20110509
  Transmission Date: 20120825
  Serious: Yes (Hospitalization)
  Sender: FDA-Public Use
  Company Number: 163-21880-11022267

PATIENT
  Age: 76 Year
  Sex: Male

DRUGS (16)
  1. COMBIVENT [Concomitant]
  2. REVLIMID [Suspect]
     Indication: MYELODYSPLASTIC SYNDROME
     Dosage: 5 MG, DAILY ON DAYS 1-28 PO ; 5 MG, 1 IN 1 D, PO
     Route: 048
     Dates: start: 20101228, end: 20110113
  3. REVLIMID [Suspect]
     Indication: MYELODYSPLASTIC SYNDROME
     Dosage: 5 MG, DAILY ON DAYS 1-28 PO ; 5 MG, 1 IN 1 D, PO
     Route: 048
     Dates: start: 20110101
  4. PLAVIX [Concomitant]
  5. STEROIDS (CORTICOSTEROIDS NOS) [Concomitant]
  6. TOPROL-XL [Concomitant]
  7. SYNTHROID [Concomitant]
  8. EXJADE [Concomitant]
  9. ASPIRIN [Concomitant]
  10. LASIX [Concomitant]
  11. ALTACE [Concomitant]
  12. OXYBUTYNIN [Concomitant]
  13. METHADONE HCL [Concomitant]
  14. PRILOSEC [Concomitant]
  15. DOXEPIN HCL [Concomitant]
  16. ALLEGRA [Concomitant]

REACTIONS (3)
  - CARDIAC FAILURE CONGESTIVE [None]
  - ATRIAL FIBRILLATION [None]
  - MUSCLE SPASMS [None]
